FAERS Safety Report 19753933 (Version 8)
Quarter: 2021Q4

REPORT INFORMATION
  Report Type: Spontaneous
  Country: US (occurrence: US)
  Receive Date: 20210827
  Receipt Date: 20211020
  Transmission Date: 20220303
  Serious: Yes (Other)
  Sender: FDA-Public Use
  Company Number: US-GLAXOSMITHKLINE-US2021AMR179292

PATIENT
  Age: 53 Year
  Sex: Female

DRUGS (2)
  1. ZEJULA [Suspect]
     Active Substance: NIRAPARIB
     Indication: Product used for unknown indication
     Dosage: 200 MG, QD
     Dates: start: 20210824
  2. ZEJULA [Suspect]
     Active Substance: NIRAPARIB
     Dosage: 100 MG, QD
     Dates: end: 20211008

REACTIONS (12)
  - Multiple sclerosis [Unknown]
  - Headache [Not Recovered/Not Resolved]
  - Central nervous system lesion [Unknown]
  - Constipation [Not Recovered/Not Resolved]
  - Hot flush [Not Recovered/Not Resolved]
  - Migraine [Not Recovered/Not Resolved]
  - Aggression [Unknown]
  - Agitation [Unknown]
  - Nightmare [Unknown]
  - Sleep disorder [Unknown]
  - Muscle tightness [Unknown]
  - Bone pain [Unknown]

NARRATIVE: CASE EVENT DATE: 20210801
